FAERS Safety Report 5863057-7 (Version None)
Quarter: 2008Q3

REPORT INFORMATION
  Report Type: 
  Country: None (occurrence: None)
  Receive Date: 20080828
  Receipt Date: 20080820
  Transmission Date: 20090109
  Serious: Yes (Other)
  Sender: FDA-Public Use
  Company Number: US-ASTRAZENECA-2008UW17103

PATIENT
  Age: 75 Year
  Sex: Female
  Weight: 65.8 kg

DRUGS (4)
  1. ARIMIDEX [Suspect]
     Indication: BREAST CANCER STAGE I
     Route: 048
     Dates: start: 20041201
  2. NORVASC [Concomitant]
  3. ACTONEL [Concomitant]
  4. XANAX [Concomitant]

REACTIONS (3)
  - ARTHRALGIA [None]
  - EYE HAEMORRHAGE [None]
  - VISUAL IMPAIRMENT [None]
